FAERS Safety Report 9544128 (Version 1)
Quarter: 2013Q3

REPORT INFORMATION
  Report Type: Spontaneous
  Country: US (occurrence: US)
  Receive Date: 20130923
  Receipt Date: 20130923
  Transmission Date: 20140515
  Serious: Yes (Other)
  Sender: FDA-Public Use
  Company Number: US-BAYER-2013-114561

PATIENT
  Age: 56 Year
  Sex: Female
  Weight: 59 kg

DRUGS (4)
  1. ALEVE CAPLET [Suspect]
     Indication: HEADACHE
     Dosage: 2 DF, PRN
     Route: 048
     Dates: start: 1996
  2. ZOLOFT [Concomitant]
  3. LISINOPRIL [Concomitant]
  4. AMITRIPTYLINE [Concomitant]

REACTIONS (2)
  - Blood glucose increased [Recovered/Resolved]
  - Dizziness [Recovered/Resolved]
